FAERS Safety Report 12133751 (Version 2)
Quarter: 2016Q1

REPORT INFORMATION
  Report Type: Spontaneous
  Country: PL (occurrence: PL)
  Receive Date: 20160301
  Receipt Date: 20160309
  Transmission Date: 20160526
  Serious: Yes (Hospitalization)
  Sender: FDA-Public Use
  Company Number: PHHY2016PL024920

PATIENT
  Age: 74 Year
  Sex: Female

DRUGS (1)
  1. LAMOTRIGINE. [Suspect]
     Active Substance: LAMOTRIGINE
     Indication: POST-TRAUMATIC EPILEPSY
     Route: 065

REACTIONS (4)
  - Altered state of consciousness [Recovered/Resolved]
  - Drug ineffective [Recovered/Resolved]
  - Brain abscess [Unknown]
  - Seizure [Recovered/Resolved]
